FAERS Safety Report 7782112-8 (Version None)
Quarter: 2011Q3

REPORT INFORMATION
  Report Type: 
  Country: None (occurrence: None)
  Receive Date: 20110927
  Receipt Date: 20110919
  Transmission Date: 20111222
  Serious: Yes (Other)
  Sender: FDA-Public Use
  Company Number: US-ELI_LILLY_AND_COMPANY-US201107004989

PATIENT
  Age: 55 Year
  Sex: Female
  Weight: 69.388 kg

DRUGS (12)
  1. ESTRATEST [Concomitant]
     Dosage: UNK
  2. SYMBICORT [Concomitant]
     Dosage: UNK
  3. VITAMIN D [Concomitant]
     Dosage: UNK
  4. ORAL BLOOD GLUCOSE LOWERING DRUGS [Concomitant]
     Indication: TYPE 2 DIABETES MELLITUS
     Dosage: UNK
     Route: 048
  5. BONIVA [Concomitant]
     Dosage: UNK
  6. RELAFEN [Concomitant]
     Dosage: UNK
  7. BYETTA [Suspect]
     Dosage: 10 UG, EACH MORNING
     Route: 058
     Dates: start: 20110501, end: 20110721
  8. ASPIRIN [Concomitant]
     Dosage: UNK
  9. BYETTA [Suspect]
     Indication: TYPE 2 DIABETES MELLITUS
     Dosage: 5 UG, BID
     Route: 058
     Dates: start: 20110308, end: 20110501
  10. METFORMIN HCL [Concomitant]
     Dosage: UNK
  11. ATENOLOL [Concomitant]
     Dosage: UNK
  12. LEVOTHYROXINE SODIUM [Concomitant]
     Dosage: UNK

REACTIONS (4)
  - PANCREATIC DISORDER [None]
  - ABDOMINAL PAIN LOWER [None]
  - WEIGHT DECREASED [None]
  - PANCREATITIS [None]
